FAERS Safety Report 12267119 (Version 2)
Quarter: 2016Q2

REPORT INFORMATION
  Report Type: Spontaneous
  Country: US (occurrence: US)
  Receive Date: 20160414
  Receipt Date: 20160512
  Transmission Date: 20160815
  Serious: Yes (Other)
  Sender: FDA-Public Use
  Company Number: US-BAYER-2016-065501

PATIENT
  Age: 78 Year
  Sex: Male
  Weight: 72.56 kg

DRUGS (5)
  1. ALEVE [Suspect]
     Active Substance: NAPROXEN SODIUM
     Indication: ANALGESIC THERAPY
     Dosage: 2 DF, QD
     Route: 048
     Dates: start: 2015, end: 20160403
  2. QUININE [Concomitant]
     Active Substance: QUININE
  3. BAYER LOW DOSE [Suspect]
     Active Substance: ASPIRIN
     Indication: ISCHAEMIC HEART DISEASE PROPHYLAXIS
     Dosage: 1 DF, QD
     Route: 048
     Dates: end: 2012
  4. CRESTOR [Concomitant]
     Active Substance: ROSUVASTATIN CALCIUM
  5. ADALAT CC [Concomitant]
     Active Substance: NIFEDIPINE

REACTIONS (7)
  - Product use issue [Unknown]
  - Cerebrovascular accident [None]
  - Vein rupture [Not Recovered/Not Resolved]
  - Muscle spasms [None]
  - Pain in extremity [Recovered/Resolved]
  - Contusion [Not Recovered/Not Resolved]
  - Wrong technique in product usage process [None]

NARRATIVE: CASE EVENT DATE: 2012
